FAERS Safety Report 16477682 (Version 1)
Quarter: 2019Q2

REPORT INFORMATION
  Report Type: Spontaneous
  Country: ES (occurrence: ES)
  Receive Date: 20190626
  Receipt Date: 20190626
  Transmission Date: 20190711
  Serious: Yes (Other)
  Sender: FDA-Public Use
  Company Number: ES-DUCHESNAY INC.-2069590

PATIENT
  Age: 59 Year

DRUGS (4)
  1. ERGOCALCIFEROL. [Concomitant]
     Active Substance: ERGOCALCIFEROL
  2. OSPHENA [Suspect]
     Active Substance: OSPEMIFENE
     Indication: ATROPHIC VULVOVAGINITIS
  3. CALCIUM [Concomitant]
     Active Substance: CALCIUM
  4. COMBRISA [Concomitant]

REACTIONS (1)
  - Cerebrovascular accident [Unknown]
